FAERS Safety Report 18517989 (Version 3)
Quarter: 2020Q4

REPORT INFORMATION
  Report Type: Report from Study
  Country: US (occurrence: US)
  Receive Date: 20201118
  Receipt Date: 20201211
  Transmission Date: 20210114
  Serious: Yes (Other)
  Sender: FDA-Public Use
  Company Number: US-PFIZER INC-2017355713

PATIENT
  Age: 56 Year
  Sex: Female

DRUGS (4)
  1. IBRANCE [Suspect]
     Active Substance: PALBOCICLIB
     Dosage: 100 MG, DAILY
     Route: 048
     Dates: start: 20170906
  2. IBRANCE [Suspect]
     Active Substance: PALBOCICLIB
     Dosage: 100 MG, DAILY
     Route: 048
     Dates: start: 20170804
  3. IBRANCE [Suspect]
     Active Substance: PALBOCICLIB
     Dosage: 100 MG, CYCLIC (DAILY FOR 21 DAYS OF 28 DAYS CYCLE)
     Route: 048
     Dates: start: 20201019
  4. IBRANCE [Suspect]
     Active Substance: PALBOCICLIB
     Indication: BREAST CANCER FEMALE
     Dosage: 125 MG, DAILY
     Route: 048
     Dates: start: 20170804, end: 20170820

REACTIONS (13)
  - Myelosuppression [Unknown]
  - Vision blurred [Unknown]
  - Mucosal inflammation [Unknown]
  - Rash pruritic [Unknown]
  - Neutropenia [Unknown]
  - Neoplasm progression [Unknown]
  - Alopecia [Unknown]
  - Leukopenia [Unknown]
  - Fatigue [Unknown]
  - Stomatitis [Unknown]
  - White blood cell count decreased [Unknown]
  - Rash erythematous [Unknown]
  - Pyrexia [Recovered/Resolved]

NARRATIVE: CASE EVENT DATE: 2017
